FAERS Safety Report 5080579-X (Version None)
Quarter: 2006Q3

REPORT INFORMATION
  Report Type: 
  Country: None (occurrence: None)
  Receive Date: 20060815
  Receipt Date: 20060808
  Transmission Date: 20061208
  Serious: Yes (Other)
  Sender: FDA-Public Use
  Company Number: US-GLAXOSMITHKLINE-A0616053A

PATIENT
  Sex: Female

DRUGS (1)
  1. PAXIL CR [Suspect]
     Indication: DRUG USE FOR UNKNOWN INDICATION
     Dosage: 1TAB UNKNOWN
     Route: 048
     Dates: start: 20020101

REACTIONS (4)
  - ANXIETY [None]
  - CRYING [None]
  - FEELING ABNORMAL [None]
  - SUICIDAL IDEATION [None]
